FAERS Safety Report 8187391-3 (Version None)
Quarter: 2012Q1

REPORT INFORMATION
  Report Type: 
  Country: None (occurrence: None)
  Receive Date: 20120306
  Receipt Date: 20120227
  Transmission Date: 20120608
  Serious: Yes (Other)
  Sender: FDA-Public Use
  Company Number: US-BAYER-2011-041012

PATIENT
  Age: 32 Year
  Sex: Female
  Weight: 77.098 kg

DRUGS (11)
  1. OMEPRAZOLE [Concomitant]
     Indication: ABDOMINAL PAIN
     Dosage: 20 MG, QD
     Route: 048
     Dates: start: 20080101, end: 20090101
  2. PREVACID [Concomitant]
     Indication: ABDOMINAL PAIN
     Dosage: UNK
     Route: 048
     Dates: start: 20080401, end: 20091101
  3. VENTOLIN [Concomitant]
     Dosage: 2 PUFFS INHALED
     Dates: start: 20060326
  4. YAZ [Suspect]
     Indication: MENSTRUATION IRREGULAR
  5. PROZAC [Concomitant]
     Dosage: 20 MG, UNK
     Route: 048
     Dates: start: 20090326
  6. ASTELIN [Concomitant]
     Dosage: 2 SPRAYS INHALED
     Dates: start: 20090326
  7. AZITHROMYCIN [Concomitant]
     Dosage: 250 MG, UNK
     Route: 048
     Dates: start: 20090326
  8. YAZ [Suspect]
     Indication: CONTRACEPTION
     Dosage: UNK
     Dates: start: 20070414, end: 20090518
  9. LEVOTHYROXINE SODIUM [Concomitant]
     Indication: HYPOTHYROIDISM
     Dosage: 125 MG, QD
     Route: 048
     Dates: start: 20080401, end: 20091101
  10. SYNTHROID [Concomitant]
     Indication: HYPOTHYROIDISM
     Dosage: UNK
     Route: 048
     Dates: start: 20070101
  11. ALBUTEROL [Concomitant]
     Dosage: 2 PUFFS INHALED
     Dates: start: 20090318

REACTIONS (15)
  - DEEP VEIN THROMBOSIS [None]
  - INJURY [None]
  - GENERAL PHYSICAL HEALTH DETERIORATION [None]
  - EMOTIONAL DISTRESS [None]
  - LIMB INJURY [None]
  - GAIT DISTURBANCE [None]
  - DYSPNOEA [None]
  - VENOUS INSUFFICIENCY [None]
  - PAIN IN EXTREMITY [None]
  - ANXIETY [None]
  - DIZZINESS [None]
  - HEADACHE [None]
  - FEAR [None]
  - PAIN [None]
  - RESTLESS LEGS SYNDROME [None]
